FAERS Safety Report 5401148-5 (Version None)
Quarter: 2007Q3

REPORT INFORMATION
  Report Type: 
  Country: None (occurrence: None)
  Receive Date: 20070726
  Receipt Date: 20070717
  Transmission Date: 20080115
  Serious: Yes (Other)
  Sender: FDA-Public Use
  Company Number: S07-USA-03117-01

PATIENT
  Age: 57 Year
  Sex: Female

DRUGS (2)
  1. CELEXA ( CITALOPRAM HYDROHROMIDE) [Suspect]
     Indication: DEPRESSION
  2. XANAX [Suspect]
     Indication: DEPRESSION

REACTIONS (3)
  - FATIGUE [None]
  - IMPAIRED DRIVING ABILITY [None]
  - ROAD TRAFFIC ACCIDENT [None]
